FAERS Safety Report 9606654 (Version 2)
Quarter: 2013Q4

REPORT INFORMATION
  Report Type: Spontaneous
  Country: US (occurrence: US)
  Receive Date: 20131008
  Receipt Date: 20131008
  Transmission Date: 20140711
  Serious: No
  Sender: FDA-Public Use
  Company Number: US-AMGEN-USASP2013055761

PATIENT
  Age: 72 Year
  Sex: Female
  Weight: 143 kg

DRUGS (14)
  1. PROLIA [Suspect]
     Indication: OSTEOPOROSIS POSTMENOPAUSAL
     Dosage: 60 MG, Q6MO
     Route: 058
     Dates: start: 20130102
  2. PROLIA [Suspect]
  3. LEVOTHROID [Concomitant]
     Dosage: 200 MUG, QD
     Route: 048
  4. FUROSEMIDE [Concomitant]
     Dosage: 80 MG, QD
     Route: 048
     Dates: start: 20130802
  5. SPIRONOLACTONE [Concomitant]
     Dosage: 25 MG, QD
     Route: 048
     Dates: start: 20130417
  6. HYDROXYCHLOROQUINE SULPHATE [Concomitant]
     Dosage: 200 MG, 1 OR 1/2 QD
     Route: 048
     Dates: start: 20121119
  7. CALCIUM 600+D                      /00944201/ [Concomitant]
     Dosage: UNK UNK, BID
     Route: 048
     Dates: start: 20120925
  8. MAGNESIUM [Concomitant]
     Dosage: 500 MG, BID
     Route: 048
     Dates: start: 20120403
  9. POTASSIUM CHLORIDE [Concomitant]
     Dosage: 20 MEQ 2 TAB, BID
     Route: 048
     Dates: start: 20120403
  10. OMEPRAZOLE [Concomitant]
     Dosage: 20 MG 1 CAPSULE, UNK
     Route: 048
     Dates: start: 20130403
  11. ASPIRIN [Concomitant]
     Dosage: 325 MG, QD
     Route: 048
     Dates: start: 20130417
  12. CYMBALTA [Concomitant]
     Dosage: 60 MG, QD
     Route: 048
     Dates: start: 20130529
  13. HYDROCODONE/ACETAMINOPHEN          /00607101/ [Concomitant]
     Dosage: 7.5-325 MG TAB 1-2 Q6H AS NECESSARY
     Route: 048
     Dates: start: 20130529
  14. MIRAPEX [Concomitant]
     Dosage: 0.5 MG, TID
     Route: 048
     Dates: start: 20130603

REACTIONS (2)
  - Adverse event [Unknown]
  - Wrong technique in drug usage process [Recovered/Resolved]
